FAERS Safety Report 12638467 (Version 2)
Quarter: 2016Q4

REPORT INFORMATION
  Report Type: Spontaneous
  Country: US (occurrence: US)
  Receive Date: 20160809
  Receipt Date: 20161108
  Transmission Date: 20170207
  Serious: No
  Sender: FDA-Public Use
  Company Number: US-SA-2016SA130341

PATIENT
  Age: 70 Year
  Sex: Female

DRUGS (23)
  1. CALCIUM [Concomitant]
     Active Substance: CALCIUM
  2. SINGULAIR [Concomitant]
     Active Substance: MONTELUKAST SODIUM
  3. PATANASE [Concomitant]
     Active Substance: OLOPATADINE HYDROCHLORIDE
  4. ASA [Concomitant]
     Active Substance: ASPIRIN
  5. CYMBALTA [Concomitant]
     Active Substance: DULOXETINE HYDROCHLORIDE
  6. RANITIDINE. [Concomitant]
     Active Substance: RANITIDINE
  7. NITRO [Concomitant]
     Active Substance: NITROGLYCERIN
  8. VITAMIN D [Concomitant]
     Active Substance: CHOLECALCIFEROL
  9. ALIROCUMAB PREFILLED PEN [Concomitant]
     Active Substance: ALIROCUMAB
     Dates: start: 20160620, end: 20160804
  10. COMBIVENT [Concomitant]
     Active Substance: ALBUTEROL SULFATE\IPRATROPIUM BROMIDE
  11. COLACE [Concomitant]
     Active Substance: DOCUSATE SODIUM
  12. MAGNESIUM [Concomitant]
     Active Substance: MAGNESIUM
  13. OMEGA-3 POLYUNSATURATED FATTY ACID [Concomitant]
  14. COENZYME Q10 [Concomitant]
     Active Substance: UBIDECARENONE
  15. DEXILANT [Concomitant]
     Active Substance: DEXLANSOPRAZOLE
  16. FLONASE [Concomitant]
     Active Substance: FLUTICASONE PROPIONATE
  17. SENNA [Concomitant]
     Active Substance: SENNA LEAF\SENNOSIDES\SENNOSIDES A AND B
  18. PRALUENT [Suspect]
     Active Substance: ALIROCUMAB
     Indication: HYPERLIPIDAEMIA
     Route: 058
     Dates: start: 20160620, end: 20160804
  19. METHOTREXATE. [Concomitant]
     Active Substance: METHOTREXATE
  20. PROMETHAZINE [Concomitant]
     Active Substance: PROMETHAZINE\PROMETHAZINE HYDROCHLORIDE
  21. EPIPEN [Concomitant]
     Active Substance: EPINEPHRINE
  22. EVOLOCUMAB [Concomitant]
     Active Substance: EVOLOCUMAB
  23. VITAMIN E [Concomitant]
     Active Substance: .ALPHA.-TOCOPHEROL

REACTIONS (8)
  - Arthralgia [Recovered/Resolved]
  - Rash [Recovered/Resolved]
  - Pruritus [Recovered/Resolved]
  - Cough [Recovered/Resolved]
  - Nasal congestion [Recovered/Resolved]
  - Myalgia [Recovered/Resolved]
  - Acne [Recovered/Resolved]
  - Erythema [Recovered/Resolved]

NARRATIVE: CASE EVENT DATE: 20160623
